FAERS Safety Report 11612761 (Version 1)
Quarter: 2015Q4

REPORT INFORMATION
  Report Type: Spontaneous
  Country: US (occurrence: US)
  Receive Date: 20151008
  Receipt Date: 20151008
  Transmission Date: 20160304
  Serious: No
  Sender: FDA-Public Use
  Company Number: US-JNJFOC-20150911290

PATIENT
  Sex: Male

DRUGS (1)
  1. INVOKANA [Suspect]
     Active Substance: CANAGLIFLOZIN
     Indication: PRODUCT USED FOR UNKNOWN INDICATION
     Route: 048
     Dates: start: 201501, end: 2015

REACTIONS (4)
  - Asthenia [Unknown]
  - Weight decreased [Unknown]
  - Dizziness [Unknown]
  - Adverse event [Unknown]

NARRATIVE: CASE EVENT DATE: 2015
